FAERS Safety Report 24274160 (Version 2)
Quarter: 2024Q4

REPORT INFORMATION
  Report Type: Spontaneous
  Country: US (occurrence: US)
  Receive Date: 20240902
  Receipt Date: 20241016
  Transmission Date: 20250115
  Serious: No
  Sender: NOVARTIS
  Company Number: US-002147023-NVSC2024US175855

PATIENT
  Sex: Male

DRUGS (1)
  1. LEQVIO [Suspect]
     Active Substance: INCLISIRAN SODIUM
     Indication: Hyperlipidaemia
     Dosage: 1.5 MG (EVERY 6 MONTHS)
     Route: 058
     Dates: start: 20240420, end: 20240821

REACTIONS (2)
  - Blood glucose increased [Unknown]
  - Intraocular pressure increased [Unknown]
